FAERS Safety Report 24875072 (Version 1)
Quarter: 2025Q1

REPORT INFORMATION
  Report Type: Other
  Country: US (occurrence: US)
  Receive Date: 20250122
  Receipt Date: 20250122
  Transmission Date: 20250409
  Serious: Yes (Hospitalization)
  Sender: B BRAUN
  Company Number: US-B.Braun Medical Inc.-2169563

PATIENT
  Age: 33 Year
  Sex: Female

DRUGS (4)
  1. DEXTROSE [Suspect]
     Active Substance: DEXTROSE MONOHYDRATE
  2. INSULIN NOS [Suspect]
     Active Substance: INSULIN NOS
  3. LEVOTHYROXINE [Concomitant]
     Active Substance: LEVOTHYROXINE
  4. HYDROCORTISONE [Concomitant]
     Active Substance: HYDROCORTISONE

REACTIONS (1)
  - Drug ineffective [Unknown]
